FAERS Safety Report 7235153-3 (Version None)
Quarter: 2011Q1

REPORT INFORMATION
  Report Type: 
  Country: None (occurrence: None)
  Receive Date: 20110114
  Receipt Date: 20110114
  Transmission Date: 20110831
  Serious: Yes (Life-Threatening, Hospitalization)
  Sender: FDA-Public Use
  Company Number: None

PATIENT
  Age: 27 Year
  Sex: Female
  Weight: 72.5755 kg

DRUGS (2)
  1. ZITHROMAX [Suspect]
     Indication: PHARYNGITIS STREPTOCOCCAL
     Dosage: 250 MG 1 TIMES PER DAY PO
     Route: 048
     Dates: start: 20101229, end: 20110108
  2. CLINDAMYCIN [Suspect]
     Indication: PHARYNGITIS STREPTOCOCCAL
     Dosage: 300 MG 4 TIMES PER DAY PO
     Route: 048
     Dates: start: 20101217, end: 20101227

REACTIONS (5)
  - URTICARIA [None]
  - DISCOMFORT [None]
  - RASH GENERALISED [None]
  - SWELLING [None]
  - FEELING HOT [None]
